FAERS Safety Report 5145303-0 (Version None)
Quarter: 2006Q4

REPORT INFORMATION
  Report Type: 
  Country: None (occurrence: None)
  Receive Date: 20061101
  Receipt Date: 20061016
  Transmission Date: 20070319
  Serious: Yes (Hospitalization)
  Sender: FDA-Public Use
  Company Number: 2006001987

PATIENT
  Age: 44 Year
  Sex: Female

DRUGS (3)
  1. ERLOTINIB (TABLET)  (ERLOTINIB HCL) [Suspect]
     Indication: PANCREATIC CARCINOMA METASTATIC
     Dosage: 100 MG (QD), ORAL
     Route: 048
     Dates: start: 20060731, end: 20061003
  2. BEVACIZUMAB [Suspect]
     Indication: PANCREATIC CARCINOMA METASTATIC
     Dosage: UNK
  3. GEMCITABINE [Suspect]
     Indication: PANCREATIC CARCINOMA METASTATIC
     Dosage: UNK

REACTIONS (1)
  - CEREBRAL ARTERY EMBOLISM [None]
